FAERS Safety Report 5479701-2 (Version None)
Quarter: 2007Q4

REPORT INFORMATION
  Report Type: 
  Country: None (occurrence: None)
  Receive Date: 20071008
  Receipt Date: 20071003
  Transmission Date: 20080405
  Serious: Yes (Death, Other)
  Sender: FDA-Public Use
  Company Number: MX-BRISTOL-MYERS SQUIBB COMPANY-13693908

PATIENT
  Age: 45 Year
  Sex: Female

DRUGS (4)
  1. ABATACEPT [Suspect]
     Indication: RHEUMATOID ARTHRITIS
     Route: 042
     Dates: start: 20030422, end: 20070122
  2. METHOTREXATE TABS [Suspect]
     Route: 048
     Dates: start: 20051005, end: 20070319
  3. AZULFIDINE [Concomitant]
     Dates: start: 20040101, end: 20070319
  4. CELEBREX [Concomitant]
     Dates: start: 20021201, end: 20070319

REACTIONS (2)
  - ACUTE LYMPHOCYTIC LEUKAEMIA [None]
  - PNEUMONIA [None]
